FAERS Safety Report 25838960 (Version 1)
Quarter: 2025Q3

REPORT INFORMATION
  Report Type: Spontaneous
  Country: US (occurrence: US)
  Receive Date: 20250924
  Receipt Date: 20250924
  Transmission Date: 20251020
  Serious: Yes (Other)
  Sender: IPCA
  Company Number: US-IPCA LABORATORIES LIMITED-IPC-2025-US-002579

PATIENT

DRUGS (2)
  1. LAMOTRIGINE [Suspect]
     Active Substance: LAMOTRIGINE
     Indication: Epilepsy
     Route: 065
  2. GABAPENTIN [Concomitant]
     Active Substance: GABAPENTIN
     Indication: Product used for unknown indication
     Route: 065

REACTIONS (12)
  - Hallucination, visual [Recovered/Resolved]
  - Seizure [Unknown]
  - Encephalopathy [Unknown]
  - Toxicity to various agents [Unknown]
  - Aggression [Unknown]
  - Mydriasis [Unknown]
  - Eye movement disorder [Recovered/Resolved]
  - Ear disorder [Unknown]
  - Vestibular migraine [Unknown]
  - Intentional overdose [Unknown]
  - Gait disturbance [Recovered/Resolved]
  - Confusional state [Recovered/Resolved]
